FAERS Safety Report 9156842 (Version 2)
Quarter: 2013Q2

REPORT INFORMATION
  Report Type: Report from Study
  Country: US (occurrence: US)
  Receive Date: 20130312
  Receipt Date: 20130409
  Transmission Date: 20140414
  Serious: No
  Sender: FDA-Public Use
  Company Number: US-VERTEX PHARMACEUTICALS INC.-2013-003326

PATIENT
  Age: 59 Year
  Sex: Male
  Weight: 70 kg

DRUGS (5)
  1. VX-950 (TELAPREVIR) [Suspect]
     Indication: HEPATITIS C
     Dosage: 750 MG, TID
     Route: 048
  2. PEGASYS [Suspect]
     Indication: HEPATITIS C
     Route: 058
  3. RIBAPAK [Suspect]
     Indication: HEPATITIS C
     Dosage: 800 UNK, QD
     Route: 048
  4. CLARITIN [Concomitant]
     Dosage: 5 MG
  5. ADVIL                              /00044201/ [Concomitant]
     Dosage: 200 MG

REACTIONS (3)
  - Headache [Unknown]
  - Anal pruritus [Unknown]
  - Rash pruritic [Unknown]
